FAERS Safety Report 26167857 (Version 1)
Quarter: 2025Q4

REPORT INFORMATION
  Report Type: Spontaneous
  Country: US (occurrence: US)
  Receive Date: 20251217
  Receipt Date: 20251217
  Transmission Date: 20260118
  Serious: No
  Sender: ABBVIE
  Company Number: US-ABBVIE-6592551

PATIENT

DRUGS (2)
  1. BOTOX [Suspect]
     Active Substance: ONABOTULINUMTOXINA
     Indication: Torticollis
     Dosage: TIME INTERVAL: AS NECESSARY: THERAPEUTIC
     Route: 065
     Dates: start: 202511, end: 202511
  2. BOTOX [Suspect]
     Active Substance: ONABOTULINUMTOXINA
     Indication: Torticollis
     Dosage: TIME INTERVAL: AS NECESSARY: THERAPEUTIC
     Route: 065
     Dates: start: 2005, end: 2005

REACTIONS (1)
  - Drug ineffective [Unknown]

NARRATIVE: CASE EVENT DATE: 20251101
